FAERS Safety Report 10089795 (Version 2)
Quarter: 2014Q2

REPORT INFORMATION
  Report Type: Spontaneous
  Country: CA (occurrence: CA)
  Receive Date: 20140421
  Receipt Date: 20140421
  Transmission Date: 20141212
  Serious: Yes (Other)
  Sender: FDA-Public Use
  Company Number: CA-ELI_LILLY_AND_COMPANY-CA_050307832

PATIENT
  Age: 1 Day
  Sex: 0

DRUGS (1)
  1. OLANZAPINE [Suspect]
     Dosage: UNK, UNKNOWN
     Route: 064

REACTIONS (3)
  - Encephalocele [Unknown]
  - Cleft lip [Unknown]
  - Congenital anomaly [Unknown]
